FAERS Safety Report 23157621 (Version 2)
Quarter: 2023Q4

REPORT INFORMATION
  Report Type: Spontaneous
  Country: FI (occurrence: FI)
  Receive Date: 20231108
  Receipt Date: 20231204
  Transmission Date: 20240109
  Serious: Yes (Other)
  Sender: FDA-Public Use
  Company Number: FI-ABBVIE-5465218

PATIENT
  Age: 54 Year
  Sex: Female
  Weight: 94.3 kg

DRUGS (1)
  1. ADALIMUMAB [Suspect]
     Active Substance: ADALIMUMAB\ISOPROPYL ALCOHOL
     Indication: Crohn^s disease
     Dosage: 40 MILLIGRAM, Q2WK (FORM STRENGTH: 40 MILLIGRAM )
     Route: 058
     Dates: start: 20221020, end: 20230406

REACTIONS (4)
  - Rheumatoid arthritis [Unknown]
  - Myalgia [Unknown]
  - Joint effusion [Unknown]
  - Synovitis [Unknown]

NARRATIVE: CASE EVENT DATE: 20221001
